FAERS Safety Report 8360775-6 (Version None)
Quarter: 2012Q2

REPORT INFORMATION
  Report Type: 
  Country: None (occurrence: None)
  Receive Date: 20120515
  Receipt Date: 20120511
  Transmission Date: 20120825
  Serious: Yes (Disabling, Other)
  Sender: FDA-Public Use
  Company Number: US-PFIZER INC-2012115723

PATIENT
  Sex: Male
  Weight: 118 kg

DRUGS (4)
  1. ZOLOFT [Suspect]
     Indication: DEPRESSION
     Dosage: 50 MG, DAILY
     Dates: start: 20110401
  2. LISINOPRIL AND HYDROCHLOROTHIAZIDE [Suspect]
     Indication: CARDIAC DISORDER
     Dosage: 10/12.5 MG, DAILY
     Dates: start: 20080101, end: 20110101
  3. SIMVASTATIN [Concomitant]
     Indication: CARDIAC DISORDER
     Dosage: 20 MG, DAILY
     Dates: start: 20080101
  4. ZOLOFT [Suspect]
     Dosage: 100 MG, DAILY
     Dates: start: 20120401

REACTIONS (10)
  - ARNOLD-CHIARI MALFORMATION [None]
  - NAUSEA [None]
  - DIZZINESS [None]
  - HYPOTENSION [None]
  - HEPATIC ENZYME INCREASED [None]
  - MUSCLE ENZYME INCREASED [None]
  - BLOOD SODIUM DECREASED [None]
  - MOTION SICKNESS [None]
  - CONGENITAL CENTRAL NERVOUS SYSTEM ANOMALY [None]
  - DRUG INEFFECTIVE [None]
